FAERS Safety Report 5083117-0 (Version None)
Quarter: 2006Q3

REPORT INFORMATION
  Report Type: 
  Country: None (occurrence: None)
  Receive Date: 20060720
  Receipt Date: 20060509
  Transmission Date: 20061208
  Serious: Yes (Hospitalization, Disabling, Other)
  Sender: FDA-Public Use
  Company Number: 2006063129

PATIENT
  Age: 49 Year
  Sex: Female
  Weight: 136.0791 kg

DRUGS (3)
  1. CELEBREX [Suspect]
     Indication: CHEST PAIN
     Dosage: 400 MG (200 MG, 2 IN 1 D)
     Dates: start: 20010101, end: 20040101
  2. CELEBREX [Suspect]
     Indication: HEADACHE
     Dosage: 400 MG (200 MG, 2 IN 1 D)
     Dates: start: 20010101, end: 20040101
  3. CELEBREX [Suspect]
     Indication: PAIN IN EXTREMITY
     Dosage: 400 MG (200 MG, 2 IN 1 D)
     Dates: start: 20010101, end: 20040101

REACTIONS (6)
  - CARDIAC FAILURE CONGESTIVE [None]
  - CEREBROVASCULAR ACCIDENT [None]
  - CHEST PAIN [None]
  - CONDITION AGGRAVATED [None]
  - HEADACHE [None]
  - STRESS [None]
